FAERS Safety Report 19901176 (Version 1)
Quarter: 2021Q3

REPORT INFORMATION
  Report Type: Spontaneous
  Country: GB (occurrence: GB)
  Receive Date: 20210930
  Receipt Date: 20210930
  Transmission Date: 20211014
  Serious: Yes (Other)
  Sender: FDA-Public Use
  Company Number: GB-PFIZER INC-202101242957

PATIENT
  Age: 55 Year
  Sex: Female
  Weight: 100 kg

DRUGS (11)
  1. FOSTAIR [Concomitant]
     Active Substance: BECLOMETHASONE\FORMOTEROL
     Indication: ILL-DEFINED DISORDER
  2. SALBUTAMOL BP [Concomitant]
     Indication: ILL-DEFINED DISORDER
  3. GENTAMICIN. [Concomitant]
     Active Substance: GENTAMICIN
     Indication: ILL-DEFINED DISORDER
  4. TRANEXAMIC ACID. [Suspect]
     Active Substance: TRANEXAMIC ACID
     Indication: HAEMOSTASIS
     Dosage: 200 MG
     Route: 042
     Dates: start: 20210920, end: 20210920
  5. NAPROXEN SODIUM. [Concomitant]
     Active Substance: NAPROXEN SODIUM
     Indication: ILL-DEFINED DISORDER
  6. CLINDAMYCIN HYDROCHLORIDE. [Concomitant]
     Active Substance: CLINDAMYCIN HYDROCHLORIDE
     Indication: ILL-DEFINED DISORDER
  7. FLUCLOXACILLIN SODIUM [Concomitant]
     Active Substance: FLUCLOXACILLIN SODIUM
     Indication: ILL-DEFINED DISORDER
  8. OMEPRAZOLE SODIUM [Concomitant]
     Active Substance: OMEPRAZOLE SODIUM
     Indication: ILL-DEFINED DISORDER
  9. BENZYLPENICILLIN SODIUM [Concomitant]
     Active Substance: PENICILLIN G SODIUM
     Indication: ILL-DEFINED DISORDER
  10. COCODAMOL [Concomitant]
     Active Substance: ACETAMINOPHEN\CODEINE PHOSPHATE
     Indication: ILL-DEFINED DISORDER
  11. MORPHINE [Concomitant]
     Active Substance: MORPHINE
     Indication: ILL-DEFINED DISORDER

REACTIONS (1)
  - Bronchospasm [Recovered/Resolved]

NARRATIVE: CASE EVENT DATE: 20210920
